FAERS Safety Report 18551863 (Version 2)
Quarter: 2021Q1

REPORT INFORMATION
  Report Type: Spontaneous
  Country: US (occurrence: US)
  Receive Date: 20201126
  Receipt Date: 20210104
  Transmission Date: 20210419
  Serious: No
  Sender: FDA-Public Use
  Company Number: US-ASTRAZENECA-2020SF45793

PATIENT
  Sex: Female
  Weight: 64.4 kg

DRUGS (4)
  1. SYMBICORT [Suspect]
     Active Substance: BUDESONIDE\FORMOTEROL FUMARATE DIHYDRATE
     Indication: DYSPNOEA
     Dosage: 80/4.5 MCG , TWO INHALATIONS TWICE A DAY
     Route: 055
     Dates: start: 202008
  2. ALBUTEROL. [Concomitant]
     Active Substance: ALBUTEROL
     Dosage: TWO OR THREE TIMES A DAY USUALLY IN THE LATE AFTERNOON IN THE EARLY MORNING BETWEEN MIDNIGHT AND ...
     Route: 065
  3. ALBUTEROL. [Concomitant]
     Active Substance: ALBUTEROL
     Dosage: TWO INHALATIONS EVERY FOUR HOURS
     Route: 065
  4. DOXYCYCLINE. [Concomitant]
     Active Substance: DOXYCYCLINE
     Dosage: ONE PILL TWICE A DAY
     Route: 065

REACTIONS (7)
  - Weight increased [Unknown]
  - Wound secretion [Unknown]
  - Dyspnoea [Recovering/Resolving]
  - Incorrect dose administered [Unknown]
  - Device issue [Unknown]
  - Blood glucose increased [Unknown]
  - Body height decreased [Unknown]
